FAERS Safety Report 8887241 (Version 1)
Quarter: 2012Q4

REPORT INFORMATION
  Report Type: 
  Country: US (occurrence: US)
  Receive Date: 20121105
  Receipt Date: 20121105
  Transmission Date: 20130627
  Serious: Yes (Other)
  Sender: FDA-Public Use
  Company Number: US-GILEAD-2012-0064005

PATIENT
  Sex: Female

DRUGS (2)
  1. LETAIRIS [Suspect]
     Indication: PULMONARY ARTERIAL HYPERTENSION
     Dosage: 5 mg, QD
     Route: 048
     Dates: start: 20110720
  2. OXYGEN [Concomitant]

REACTIONS (4)
  - Sarcoidosis [Unknown]
  - Dyspnoea [Unknown]
  - Oxygen supplementation [Unknown]
  - Pulmonary function test decreased [Unknown]
